FAERS Safety Report 4549711-8 (Version None)
Quarter: 2005Q1

REPORT INFORMATION
  Report Type: 
  Country: None (occurrence: None)
  Receive Date: 20050110
  Receipt Date: 20041230
  Transmission Date: 20050727
  Serious: Yes (Life-Threatening)
  Sender: FDA-Public Use
  Company Number: 2004098274

PATIENT
  Age: 24 Year
  Sex: Male

DRUGS (2)
  1. GEODON [Suspect]
     Indication: PSYCHOTIC DISORDER
     Dosage: 160 MG (80 MG, 2 IN 1 D)
     Dates: start: 20041001
  2. LORAZEPAM [Concomitant]

REACTIONS (3)
  - DYSTONIA [None]
  - MUSCULOSKELETAL STIFFNESS [None]
  - TORTICOLLIS [None]
